FAERS Safety Report 24454721 (Version 2)
Quarter: 2024Q4

REPORT INFORMATION
  Report Type: Report from Study
  Country: US (occurrence: US)
  Receive Date: 20241017
  Receipt Date: 20241018
  Transmission Date: 20250114
  Serious: No
  Sender: ROCHE
  Company Number: US-ROCHE-3471534

PATIENT
  Age: 61 Year
  Sex: Female

DRUGS (4)
  1. RITUXAN [Suspect]
     Active Substance: RITUXIMAB
     Indication: Rheumatoid arthritis
     Dosage: VIAL, INFUSE 1000 MG INTRAVENOUSLY ON DAY(S) 0 AND DAY(S) 14 EVERY 6 MONTH
     Route: 041
  2. COBALT [Concomitant]
     Active Substance: COBALT
  3. CYCLOBENZAPRINE [Concomitant]
     Active Substance: CYCLOBENZAPRINE
  4. DULOXETINE [Concomitant]
     Active Substance: DULOXETINE

REACTIONS (1)
  - Drug hypersensitivity [Unknown]
